FAERS Safety Report 7819684-0 (Version None)
Quarter: 2011Q4

REPORT INFORMATION
  Report Type: 
  Country: None (occurrence: None)
  Receive Date: 20111018
  Receipt Date: 20100901
  Transmission Date: 20120403
  Serious: No
  Sender: FDA-Public Use
  Company Number: US-ASTRAZENECA-2010SE33315

PATIENT
  Age: 77 Year
  Sex: Female

DRUGS (2)
  1. SYMBICORT [Suspect]
     Dosage: 160/4.5 MCG 2 PUFFS BID
     Route: 055
     Dates: start: 20100801, end: 20100801
  2. SYMBICORT [Suspect]
     Route: 055

REACTIONS (2)
  - DYSPHAGIA [None]
  - CANDIDIASIS [None]
